FAERS Safety Report 19375407 (Version 3)
Quarter: 2021Q3

REPORT INFORMATION
  Report Type: Report from Study
  Country: CH (occurrence: CH)
  Receive Date: 20210604
  Receipt Date: 20210901
  Transmission Date: 20211014
  Serious: Yes (Other)
  Sender: FDA-Public Use
  Company Number: CH-BRISTOL-MYERS SQUIBB COMPANY-BMS-2021-051419

PATIENT
  Age: 51 Year
  Sex: Male
  Weight: 80 kg

DRUGS (10)
  1. NIVOLUMAB [Suspect]
     Active Substance: NIVOLUMAB
     Dosage: 480 MILLIGRAM
     Route: 042
     Dates: start: 20201023, end: 20201218
  2. NIVOLUMAB [Suspect]
     Active Substance: NIVOLUMAB
     Dosage: 80 MILLIGRAM
     Route: 042
     Dates: start: 20210107
  3. NIVOLUMAB [Suspect]
     Active Substance: NIVOLUMAB
     Dosage: 80 MILLIGRAM
     Route: 042
     Dates: start: 20210129
  4. IPILIMUMAB [Suspect]
     Active Substance: IPILIMUMAB
     Dosage: 250 MILLIGRAM
     Route: 042
     Dates: start: 20210315
  5. IPILIMUMAB [Suspect]
     Active Substance: IPILIMUMAB
     Dosage: 250 MILLIGRAM
     Route: 042
     Dates: start: 20210219
  6. IPILIMUMAB [Suspect]
     Active Substance: IPILIMUMAB
     Indication: METASTATIC MALIGNANT MELANOMA
     Dosage: 250 MILLIGRAM
     Route: 042
     Dates: start: 20210107
  7. IPILIMUMAB [Suspect]
     Active Substance: IPILIMUMAB
     Dosage: 250 MILLIGRAM
     Route: 042
     Dates: start: 20210129
  8. NIVOLUMAB [Suspect]
     Active Substance: NIVOLUMAB
     Dosage: 80 MILLIGRAM
     Route: 042
     Dates: start: 20210219
  9. NIVOLUMAB [Suspect]
     Active Substance: NIVOLUMAB
     Dosage: 80 MILLIGRAM
     Route: 042
     Dates: start: 20210315
  10. NIVOLUMAB [Suspect]
     Active Substance: NIVOLUMAB
     Indication: METASTATIC MALIGNANT MELANOMA
     Dosage: 240 MILLIGRAM
     Route: 042
     Dates: start: 20200729, end: 20201007

REACTIONS (2)
  - Food allergy [Unknown]
  - Immune-mediated hepatitis [Recovered/Resolved]

NARRATIVE: CASE EVENT DATE: 20210315
